FAERS Safety Report 15066956 (Version 1)
Quarter: 2018Q2

REPORT INFORMATION
  Report Type: Spontaneous
  Country: US (occurrence: US)
  Receive Date: 20180626
  Receipt Date: 20180626
  Transmission Date: 20180711
  Serious: No
  Sender: FDA-Public Use
  Company Number: US-MYLANLABS-2018M1043567

PATIENT
  Age: 73 Year
  Sex: Male
  Weight: 90 kg

DRUGS (5)
  1. FLECAINIDE [Concomitant]
     Active Substance: FLECAINIDE
     Indication: ARRHYTHMIA
     Dosage: UNK
  2. ELIQUIS [Concomitant]
     Active Substance: APIXABAN
     Indication: ATRIAL FIBRILLATION
     Dosage: UNK
  3. MUSE [Suspect]
     Active Substance: ALPROSTADIL
     Indication: ERECTILE DYSFUNCTION
     Dosage: 125 ?G, PRN
     Route: 066
     Dates: start: 201804, end: 201805
  4. FLOMAX [Concomitant]
     Active Substance: TAMSULOSIN HYDROCHLORIDE
     Indication: POLLAKIURIA
     Dosage: UNK
  5. MUSE [Suspect]
     Active Substance: ALPROSTADIL
     Indication: ERECTILE DYSFUNCTION
     Dosage: 1000 ?G, PRN
     Route: 066
     Dates: start: 20180608

REACTIONS (4)
  - Drug ineffective [Unknown]
  - Penile burning sensation [Recovered/Resolved]
  - Extra dose administered [Unknown]
  - Urethritis noninfective [Recovered/Resolved]

NARRATIVE: CASE EVENT DATE: 201804
